FAERS Safety Report 8143797-X (Version None)
Quarter: 2012Q1

REPORT INFORMATION
  Report Type: 
  Country: None (occurrence: None)
  Receive Date: 20120217
  Receipt Date: 20120208
  Transmission Date: 20120608
  Serious: Yes (Hospitalization, Other)
  Sender: FDA-Public Use
  Company Number: US-UCBSA-028390

PATIENT
  Age: 29 Year
  Sex: Female

DRUGS (2)
  1. PAXIL [Suspect]
     Indication: DRUG WITHDRAWAL SYNDROME
     Route: 048
  2. CIMZIA [Suspect]
     Indication: CROHN'S DISEASE
     Route: 058
     Dates: start: 20090429

REACTIONS (5)
  - DIARRHOEA [None]
  - PREGNANCY [None]
  - ABORTION SPONTANEOUS [None]
  - NAUSEA [None]
  - VOMITING [None]
